FAERS Safety Report 9439170 (Version 2)
Quarter: 2013Q3

REPORT INFORMATION
  Report Type: Spontaneous
  Country: US (occurrence: US)
  Receive Date: 20130802
  Receipt Date: 20130901
  Transmission Date: 20140515
  Serious: No
  Sender: FDA-Public Use
  Company Number: US-009507513-1307USA014470

PATIENT
  Age: 28 Year
  Sex: Female
  Weight: 66.44 kg

DRUGS (1)
  1. IMPLANON [Suspect]
     Indication: CONTRACEPTION
     Dosage: 68 MG, UNK
     Route: 059
     Dates: start: 20100503, end: 20130724

REACTIONS (2)
  - Menstruation irregular [Not Recovered/Not Resolved]
  - Incorrect drug administration duration [Recovered/Resolved]
